FAERS Safety Report 9772115 (Version 1)
Quarter: 2013Q4

REPORT INFORMATION
  Report Type: Spontaneous
  Country: US (occurrence: None)
  Receive Date: 20131218
  Receipt Date: 20131218
  Transmission Date: 20140711
  Serious: Yes (Other)
  Sender: FDA-Public Use
  Company Number: None

PATIENT
  Age: 79 Year
  Sex: Female
  Weight: 65.77 kg

DRUGS (1)
  1. CITALOPRAM [Suspect]
     Indication: DEPRESSION
     Dosage: 20 MG, ONCE DAILY AT BEDTIME
     Route: 048

REACTIONS (2)
  - Hallucination, auditory [None]
  - Hallucination, visual [None]
